FAERS Safety Report 15000583 (Version 1)
Quarter: 2018Q2

REPORT INFORMATION
  Report Type: Spontaneous
  Country: DE (occurrence: DE)
  Receive Date: 20180612
  Receipt Date: 20180612
  Transmission Date: 20180711
  Serious: Yes (Hospitalization)
  Sender: FDA-Public Use
  Company Number: DE-TEVA-2018-DE-905267

PATIENT
  Age: 87 Year
  Sex: Female
  Weight: 54 kg

DRUGS (14)
  1. PREDNISOLON [Concomitant]
     Active Substance: PREDNISOLONE
     Dosage: 1/2-0-0,
     Route: 048
  2. BUPRENORPHIN [Concomitant]
     Active Substance: BUPRENORPHINE
     Dosage: 35; EVERY 4 DAYS, EVERY 4 DAYS, PLASTER TRANSDERMAL
     Route: 058
  3. APIXABAN [Concomitant]
     Active Substance: APIXABAN
     Dosage: 1-0-1,
     Route: 048
  4. MACROGOL [Concomitant]
     Active Substance: POLYETHYLENE GLYCOLS
     Dosage: 1-1-0,
     Route: 048
  5. METOPROLOL. [Concomitant]
     Active Substance: METOPROLOL
     Dosage: 1/2-0-1/2,
     Route: 048
  6. OXAZEPAM. [Concomitant]
     Active Substance: OXAZEPAM
     Dosage: 0-0-1,
     Route: 048
  7. OLMESARTAN [Concomitant]
     Active Substance: OLMESARTAN
     Dosage: 1/2-0-0,
     Route: 048
  8. COLECALCIFEROL [Concomitant]
     Active Substance: CHOLECALCIFEROL
     Dosage: 20 000 IE, 1/X WEEK., KAPSELN
     Route: 048
  9. TIANEPTIN [Concomitant]
     Dosage: 1-0-1,
     Route: 048
  10. MELPERON [Concomitant]
     Active Substance: MELPERONE
     Dosage: 0-0-1,
     Route: 048
  11. PANTOPRAZOL [Concomitant]
     Active Substance: PANTOPRAZOLE SODIUM
     Dosage: 0-0-1,
     Route: 048
  12. IBUPROFEN. [Suspect]
     Active Substance: IBUPROFEN
     Dosage: 1X/D,
     Route: 048
  13. SPIRONOLACTON [Concomitant]
     Active Substance: SPIRONOLACTONE
     Dosage: 1-0-0,
     Route: 048
  14. TORASEMID [Concomitant]
     Active Substance: TORSEMIDE
     Dosage: 2-2-0,
     Route: 048

REACTIONS (5)
  - Nausea [Unknown]
  - Fatigue [Unknown]
  - Renal impairment [Unknown]
  - Decreased appetite [Unknown]
  - Dehydration [Unknown]
